FAERS Safety Report 17420784 (Version 1)
Quarter: 2020Q1

REPORT INFORMATION
  Report Type: Report from Study
  Country: CN (occurrence: CN)
  Receive Date: 20200214
  Receipt Date: 20200214
  Transmission Date: 20200409
  Serious: Yes (Death)
  Sender: FDA-Public Use
  Company Number: NVSC2020CN039994

PATIENT
  Age: 67 Year
  Sex: Male

DRUGS (1)
  1. EXJADE [Suspect]
     Active Substance: DEFERASIROX
     Indication: PRODUCT USED FOR UNKNOWN INDICATION
     Dosage: 1250 MG, QD
     Route: 048
     Dates: start: 20190829

REACTIONS (2)
  - Product use in unapproved indication [Unknown]
  - White blood cell count increased [Fatal]

NARRATIVE: CASE EVENT DATE: 20190829
